FAERS Safety Report 5843663-6 (Version None)
Quarter: 2008Q3

REPORT INFORMATION
  Report Type: 
  Country: None (occurrence: None)
  Receive Date: 20080812
  Receipt Date: 20080812
  Transmission Date: 20090109
  Serious: Yes (Hospitalization)
  Sender: FDA-Public Use
  Company Number: None

PATIENT
  Sex: Female
  Weight: 68.5 kg

DRUGS (3)
  1. CARBOPLATIN [Suspect]
     Dosage: 355 MG
  2. TAXOL [Suspect]
     Dosage: 296 MG
  3. NEULASTA [Suspect]
     Dosage: 6 MG

REACTIONS (3)
  - CHEST PAIN [None]
  - MASS [None]
  - PULMONARY EMBOLISM [None]
